FAERS Safety Report 25037662 (Version 2)
Quarter: 2025Q3

REPORT INFORMATION
  Report Type: Report from Study
  Country: EU (occurrence: EU)
  Receive Date: 20250304
  Receipt Date: 20250825
  Transmission Date: 20251021
  Serious: Yes (Congenital Anomaly)
  Sender: BAYER HEALTHCARE PHARMACEUTICALS INC.
  Company Number: EU-BAYER-2025A028067

PATIENT
  Sex: Female

DRUGS (1)
  1. BETAFERON [Suspect]
     Active Substance: INTERFERON BETA-1B
     Route: 064

REACTIONS (2)
  - Congenital aortic valve stenosis [Recovered/Resolved]
  - Foetal exposure during pregnancy [None]
